FAERS Safety Report 17530251 (Version 2)
Quarter: 2020Q2

REPORT INFORMATION
  Report Type: Spontaneous
  Country: IE (occurrence: IE)
  Receive Date: 20200311
  Receipt Date: 20200409
  Transmission Date: 20200713
  Serious: Yes (Other)
  Sender: FDA-Public Use
  Company Number: IE-REGENERON PHARMACEUTICALS, INC.-2020-24054

PATIENT

DRUGS (1)
  1. EYLEA [Suspect]
     Active Substance: AFLIBERCEPT
     Indication: NEOVASCULAR AGE-RELATED MACULAR DEGENERATION
     Dosage: STSNDARD DOSE - PATIENT HAD RECEIVED 8/9 INJECTIONS PREVIOUSLY AND HAD BEEN EXTENDED OUT TO TEN WEEK

REACTIONS (1)
  - Retinal haemorrhage [Not Recovered/Not Resolved]
